FAERS Safety Report 6330867-1 (Version None)
Quarter: 2009Q3

REPORT INFORMATION
  Report Type: 
  Country: None (occurrence: None)
  Receive Date: 20090827
  Receipt Date: 20090807
  Transmission Date: 20100115
  Serious: Yes (Other)
  Sender: FDA-Public Use
  Company Number: NL-JNJFOC-20090807002

PATIENT
  Age: 59 Year
  Sex: Male

DRUGS (7)
  1. DAKTARIN [Suspect]
     Route: 061
  2. DAKTARIN [Suspect]
     Indication: FUNGAL SKIN INFECTION
     Route: 061
  3. ACENOCOUMAROL [Interacting]
     Indication: DRUG USE FOR UNKNOWN INDICATION
     Route: 065
  4. VALPROIC ACID [Concomitant]
  5. SOTALOL HYDROCHLORIDE [Concomitant]
  6. LOSARTAN [Concomitant]
  7. FLECAINIDE ACETATE [Concomitant]

REACTIONS (2)
  - DRUG INTERACTION [None]
  - INTERNATIONAL NORMALISED RATIO INCREASED [None]
